FAERS Safety Report 5961534-1 (Version None)
Quarter: 2008Q4

REPORT INFORMATION
  Report Type: 
  Country: None (occurrence: None)
  Receive Date: 20081121
  Receipt Date: 20081113
  Transmission Date: 20090506
  Serious: Yes (Other)
  Sender: FDA-Public Use
  Company Number: A0756615A

PATIENT
  Age: 56 Year
  Sex: Female

DRUGS (12)
  1. RETROVIR [Suspect]
     Indication: HIV INFECTION
     Dosage: 100MG FIVE TIMES PER DAY
     Route: 065
  2. 3TC [Suspect]
     Indication: DRUG USE FOR UNKNOWN INDICATION
     Dosage: 150MG TWICE PER DAY
     Route: 065
  3. AVAPRO [Concomitant]
  4. DIABETA [Concomitant]
  5. COUMADIN [Concomitant]
  6. BENADRYL [Concomitant]
  7. FLONASE [Concomitant]
  8. FLOVENT [Concomitant]
  9. VENTOLIN [Concomitant]
  10. PROZAC [Concomitant]
  11. PRAVACHOL [Concomitant]
  12. RESCRIPTOR [Concomitant]

REACTIONS (2)
  - ANAEMIA [None]
  - MACROCYTOSIS [None]
